FAERS Safety Report 8637467 (Version 2)
Quarter: 2013Q1

REPORT INFORMATION
  Report Type: Spontaneous
  Country: CA (occurrence: CA)
  Receive Date: 20120627
  Receipt Date: 20130214
  Transmission Date: 20140127
  Serious: Yes (Other)
  Sender: FDA-Public Use
  Company Number: CA-AMGEN-CANSP2012028944

PATIENT
  Age: 57 Year
  Sex: Female
  Weight: 80.5 kg

DRUGS (3)
  1. ENBREL [Suspect]
     Indication: RHEUMATOID ARTHRITIS
     Dosage: 50 MG, QWK
     Route: 058
     Dates: start: 201103, end: 20120504
  2. TERAZOSIN [Concomitant]
     Indication: HYPERTENSION
     Dosage: UNK
     Route: 048
  3. ATENOLOL [Concomitant]
     Indication: HYPERTENSION
     Dosage: UNK
     Route: 048

REACTIONS (8)
  - Eye pain [Unknown]
  - Neuralgia [Unknown]
  - VIIth nerve paralysis [Recovered/Resolved]
  - Headache [Unknown]
  - Ear pain [Unknown]
  - Neck pain [Unknown]
  - Vision blurred [Unknown]
  - Ocular hyperaemia [Unknown]
